FAERS Safety Report 4312855-X (Version None)
Quarter: 2004Q1

REPORT INFORMATION
  Report Type: 
  Country: None (occurrence: None)
  Receive Date: 20040304
  Receipt Date: 20040217
  Transmission Date: 20041129
  Serious: Yes (Hospitalization)
  Sender: FDA-Public Use
  Company Number: 27803

PATIENT
  Age: 4 Year
  Sex: Male

DRUGS (3)
  1. TRAVATAN SOLUTION [Suspect]
     Indication: GLAUCOMA
     Dosage: OPHT
     Route: 047
  2. COSOPT [Suspect]
     Indication: GLAUCOMA
     Dosage: OPHT
  3. COSOPT [Suspect]

REACTIONS (2)
  - ABDOMINAL PAIN [None]
  - HYPERTENSION [None]
